FAERS Safety Report 7431686-5 (Version None)
Quarter: 2011Q2

REPORT INFORMATION
  Report Type: 
  Country: None (occurrence: None)
  Receive Date: 20110422
  Receipt Date: 20110411
  Transmission Date: 20111010
  Serious: Yes (Hospitalization)
  Sender: FDA-Public Use
  Company Number: US-BIOGENIDEC-2011BI002464

PATIENT
  Age: 35 Year
  Sex: Female
  Weight: 119 kg

DRUGS (13)
  1. RANITIDINE [Concomitant]
     Route: 048
  2. VITAMIN D [Concomitant]
     Indication: MULTIPLE SCLEROSIS
     Route: 048
  3. MULTI-VITAMIN [Concomitant]
     Route: 048
  4. PROPRANOLOL [Concomitant]
     Indication: HYPERTENSION
  5. NORTRIPTYLINE [Concomitant]
     Route: 048
  6. NAPROXEN [Concomitant]
     Indication: PAIN
     Route: 048
  7. TYSABRI [Suspect]
     Indication: MULTIPLE SCLEROSIS
     Route: 042
     Dates: start: 20091009
  8. IMITREX [Concomitant]
     Indication: MIGRAINE
     Route: 048
  9. IMITREX [Concomitant]
     Route: 048
  10. FISH OIL [Concomitant]
     Route: 048
  11. ASPIRIN [Concomitant]
     Route: 048
  12. CALCIUM [Concomitant]
     Indication: MULTIPLE SCLEROSIS
     Route: 048
  13. ALBUTEROL [Concomitant]

REACTIONS (1)
  - INTERSTITIAL LUNG DISEASE [None]
